FAERS Safety Report 7249643-0 (Version None)
Quarter: 2011Q1

REPORT INFORMATION
  Report Type: 
  Country: None (occurrence: None)
  Receive Date: 20110128
  Receipt Date: 20101216
  Transmission Date: 20110831
  Serious: Yes (Other)
  Sender: FDA-Public Use
  Company Number: US-BAYER-201024036NA

PATIENT
  Sex: Female

DRUGS (5)
  1. IBUPROFEN [Concomitant]
     Dosage: UNK
     Dates: start: 20100326
  2. KETOROLAC [Concomitant]
     Dosage: UNK
     Dates: start: 20090812
  3. YAZ [Suspect]
     Indication: PRODUCT USED FOR UNKNOWN INDICATION
     Route: 048
     Dates: start: 20060101, end: 20090815
  4. INDOMETHACIN [Concomitant]
     Dosage: UNK
     Dates: start: 20091123
  5. INDOMETHACIN [Concomitant]
     Dosage: UNK
     Dates: start: 20051226

REACTIONS (1)
  - GALLBLADDER DISORDER [None]
